FAERS Safety Report 22399046 (Version 1)
Quarter: 2023Q2

REPORT INFORMATION
  Report Type: Report from Study
  Country: US (occurrence: US)
  Receive Date: 20230602
  Receipt Date: 20230602
  Transmission Date: 20230721
  Serious: Yes (Other)
  Sender: FDA-Public Use
  Company Number: US-BAYER-2023A059944

PATIENT
  Age: 53 Year
  Sex: Male

DRUGS (3)
  1. STIVARGA [Suspect]
     Active Substance: REGORAFENIB
     Indication: Colon cancer
     Dosage: 80 MG, QD, FOR 1 WEEK
     Dates: start: 20230427
  2. STIVARGA [Suspect]
     Active Substance: REGORAFENIB
     Indication: Colon cancer
     Dosage: 40 MG, BID
     Route: 048
     Dates: start: 20230510
  3. STIVARGA [Suspect]
     Active Substance: REGORAFENIB
     Indication: Colon cancer
     Dosage: UNK
     Dates: end: 20230517

REACTIONS (8)
  - Colon cancer metastatic [None]
  - Toxicity to various agents [None]
  - Genital swelling [Recovering/Resolving]
  - Off label use [None]
  - Peripheral swelling [Recovering/Resolving]
  - Blood bilirubin increased [Unknown]
  - Tooth infection [Unknown]
  - Platelet count decreased [Unknown]

NARRATIVE: CASE EVENT DATE: 20230427
